FAERS Safety Report 4796288-8 (Version None)
Quarter: 2005Q4

REPORT INFORMATION
  Report Type: 
  Country: None (occurrence: None)
  Receive Date: 20051005
  Receipt Date: 20051005
  Transmission Date: 20060501
  Serious: Yes (Hospitalization)
  Sender: FDA-Public Use
  Company Number: None

PATIENT
  Age: 52 Year
  Sex: Female
  Weight: 92.5338 kg

DRUGS (24)
  1. IRINOTECAN HCL [Suspect]
     Indication: SMALL CELL LUNG CANCER STAGE UNSPECIFIED
     Dosage: 74 MG OVER 30-90 MIN IV
     Route: 042
     Dates: start: 20050802
  2. IRINOTECAN HCL [Suspect]
     Indication: SMALL CELL LUNG CANCER STAGE UNSPECIFIED
     Dosage: 74 MG OVER 30-90 MIN IV
     Route: 042
     Dates: start: 20050809
  3. IRINOTECAN HCL [Suspect]
     Indication: SMALL CELL LUNG CANCER STAGE UNSPECIFIED
     Dosage: 74 MG OVER 30-90 MIN IV
     Route: 042
     Dates: start: 20050822
  4. IRINOTECAN HCL [Suspect]
     Indication: SMALL CELL LUNG CANCER STAGE UNSPECIFIED
     Dosage: 74 MG OVER 30-90 MIN IV
     Route: 042
     Dates: start: 20050830
  5. IRINOTECAN HCL [Suspect]
     Indication: SMALL CELL LUNG CANCER STAGE UNSPECIFIED
     Dosage: 74 MG OVER 30-90 MIN IV
     Route: 042
     Dates: start: 20050927
  6. IRINOTECAN HCL [Suspect]
     Indication: SMALL CELL LUNG CANCER STAGE UNSPECIFIED
     Dosage: 74 MG OVER 30-90 MIN IV
     Route: 042
     Dates: start: 20051004
  7. CARBOPLATIN [Suspect]
     Dosage: 510 MG IV DAY 1
     Route: 042
     Dates: start: 20050802
  8. CARBOPLATIN [Suspect]
     Dosage: 510 MG IV DAY 1
     Route: 042
     Dates: start: 20050823
  9. CARBOPLATIN [Suspect]
     Dosage: 510 MG IV DAY 1
     Route: 042
     Dates: start: 20050927
  10. ATIVAN [Concomitant]
  11. DECADRON [Concomitant]
  12. ZOFRAN [Concomitant]
  13. PHENERGAN [Concomitant]
  14. 80 DOCUSATE SOD [Concomitant]
  15. DIAZEPAM [Concomitant]
  16. TRAZODONE HCL [Concomitant]
  17. CYCLOBENZAPRINE HCL [Concomitant]
  18. MORPHINE SULFATE [Concomitant]
  19. BUPROPION HCL [Concomitant]
  20. LISINOPRIL [Concomitant]
  21. ADVAIR DISK [Concomitant]
  22. ALBUTEROL [Concomitant]
  23. PRILOSEC OTC [Concomitant]
  24. ISONIAZID [Concomitant]

REACTIONS (9)
  - ABDOMINAL PAIN [None]
  - BACK PAIN [None]
  - CONSTIPATION [None]
  - DYSPNOEA [None]
  - NAUSEA [None]
  - PAIN [None]
  - PRODUCTIVE COUGH [None]
  - SPUTUM ABNORMAL [None]
  - VOMITING [None]
